FAERS Safety Report 20719210 (Version 1)
Quarter: 2022Q2

REPORT INFORMATION
  Report Type: Report from Study
  Country: CO (occurrence: CO)
  Receive Date: 20220418
  Receipt Date: 20220418
  Transmission Date: 20220721
  Serious: Yes (Death, Hospitalization)
  Sender: FDA-Public Use
  Company Number: CO-JNJFOC-20220428282

PATIENT
  Age: 69 Year
  Sex: Female
  Weight: 76 kg

DRUGS (1)
  1. DARATUMUMAB [Suspect]
     Active Substance: DARATUMUMAB
     Indication: Plasma cell myeloma
     Dosage: THE LATEST ADMINISTRATION WAS ON:24/MAR/2022
     Route: 042
     Dates: start: 20210719

REACTIONS (2)
  - Plasma cell myeloma [Fatal]
  - Syncope [Unknown]

NARRATIVE: CASE EVENT DATE: 20220410
